FAERS Safety Report 10737341 (Version 1)
Quarter: 2015Q1

REPORT INFORMATION
  Report Type: Spontaneous
  Country: IT (occurrence: IT)
  Receive Date: 20150126
  Receipt Date: 20150126
  Transmission Date: 20150721
  Serious: Yes (Other)
  Sender: FDA-Public Use
  Company Number: IT-PFIZER INC-2015018896

PATIENT
  Age: 50 Year
  Sex: Male

DRUGS (5)
  1. CRESTOR [Concomitant]
     Active Substance: ROSUVASTATIN CALCIUM
     Dosage: UNK
  2. TENORMIN [Suspect]
     Active Substance: ATENOLOL
     Dosage: 25 MG, DAILY
     Route: 048
     Dates: start: 20130708, end: 20130712
  3. ZOLOFT [Concomitant]
     Active Substance: SERTRALINE HYDROCHLORIDE
     Dosage: UNK
  4. NITROGLYCERIN. [Suspect]
     Active Substance: NITROGLYCERIN
     Dosage: 5 MG, 1X/DAY
     Route: 062
     Dates: start: 20130705, end: 20130712
  5. CARDIOASPIRIN [Concomitant]
     Active Substance: ASPIRIN
     Dosage: UNK

REACTIONS (1)
  - Toxic skin eruption [Recovered/Resolved]

NARRATIVE: CASE EVENT DATE: 20130710
